FAERS Safety Report 10215577 (Version 2)
Quarter: 2014Q2

REPORT INFORMATION
  Report Type: Report from Study
  Country: GB (occurrence: GB)
  Receive Date: 20140604
  Receipt Date: 20140624
  Transmission Date: 20141212
  Serious: Yes (Hospitalization)
  Sender: FDA-Public Use
  Company Number: GB-ROCHE-1410877

PATIENT
  Sex: Female
  Weight: 84 kg

DRUGS (1)
  1. TOCILIZUMAB [Suspect]
     Indication: RHEUMATOID ARTHRITIS
     Dosage: LAST DOSE PRIOR TO SAE 21/FEB/2014
     Route: 065
     Dates: start: 20120314, end: 20140221

REACTIONS (1)
  - Convulsion [Recovered/Resolved]
